FAERS Safety Report 12947756 (Version 1)
Quarter: 2016Q4

REPORT INFORMATION
  Report Type: Spontaneous
  Country: US (occurrence: US)
  Receive Date: 20161116
  Receipt Date: 20161116
  Transmission Date: 20170207
  Serious: No
  Sender: FDA-Public Use
  Company Number: US-BAUSCH-BL-2016-010003

PATIENT
  Sex: Female
  Weight: 46.76 kg

DRUGS (1)
  1. NIFEDICAL XL [Suspect]
     Active Substance: NIFEDIPINE
     Indication: BLOOD PRESSURE ABNORMAL
     Route: 065
     Dates: start: 201501

REACTIONS (4)
  - Vulvovaginal burning sensation [Not Recovered/Not Resolved]
  - Vaginal odour [Not Recovered/Not Resolved]
  - Pruritus [Not Recovered/Not Resolved]
  - Hair disorder [Not Recovered/Not Resolved]

NARRATIVE: CASE EVENT DATE: 2015
